FAERS Safety Report 15308898 (Version 3)
Quarter: 2020Q1

REPORT INFORMATION
  Report Type: Other
  Country: IT (occurrence: IT)
  Receive Date: 20180823
  Receipt Date: 20200225
  Transmission Date: 20200409
  Serious: Yes (Hospitalization, Other)
  Sender: FDA-Public Use
  Company Number: IT-MACLEODS PHARMACEUTICALS US LTD-MAC2018016420

PATIENT

DRUGS (4)
  1. LEMTRADA [Suspect]
     Active Substance: ALEMTUZUMAB
     Indication: RELAPSING-REMITTING MULTIPLE SCLEROSIS
     Dosage: 12 MILLIGRAM, QD, CONCENTRATE FOR SOLUTION FOR INFUSION
     Route: 041
     Dates: start: 20160404, end: 20160406
  2. LEMTRADA [Suspect]
     Active Substance: ALEMTUZUMAB
     Dosage: 12 MILLIGRAM, QD, CONCENTRATE FOR SOLUTION FOR INFUSION
     Route: 041
     Dates: start: 20160411, end: 20160412
  3. LEVOFLOXACIN. [Suspect]
     Active Substance: LEVOFLOXACIN
     Indication: PRODUCT USED FOR UNKNOWN INDICATION
     Dosage: UNK
     Route: 065
  4. LEMTRADA [Suspect]
     Active Substance: ALEMTUZUMAB
     Dosage: 12 MILLIGRAM, QD, CONCENTRATE FOR SOLUTION FOR INFUSION
     Route: 041
     Dates: start: 20170403, end: 20170405

REACTIONS (9)
  - Urinary tract infection [Recovered/Resolved]
  - Drug hypersensitivity [Recovered/Resolved]
  - Vulvovaginal mycotic infection [Recovered/Resolved]
  - Multiple sclerosis relapse [Recovered/Resolved]
  - Pyrexia [Recovered/Resolved]
  - Pyrexia [Recovered/Resolved]
  - Vulvovaginal mycotic infection [Recovered/Resolved]
  - Rash [Recovered/Resolved]
  - Rash [Recovered/Resolved]

NARRATIVE: CASE EVENT DATE: 20170404
